FAERS Safety Report 13328124 (Version 1)
Quarter: 2017Q1

REPORT INFORMATION
  Report Type: Spontaneous
  Country: US (occurrence: US)
  Receive Date: 20170313
  Receipt Date: 20170313
  Transmission Date: 20170428
  Serious: No
  Sender: FDA-Public Use
  Company Number: US-JNJFOC-20170220291

PATIENT
  Age: 38 Year
  Sex: Male
  Weight: 83.01 kg

DRUGS (5)
  1. CODIN [Concomitant]
     Indication: HAIR DISORDER
     Dosage: 9 PILLS
     Route: 065
  2. CODIN [Concomitant]
     Indication: VISUAL IMPAIRMENT
     Dosage: 9 PILLS
     Route: 065
  3. MENS ROGAINE EXTRA STRENGTH [Suspect]
     Active Substance: MINOXIDIL
     Indication: ALOPECIA
     Dosage: USED ONE TIME SO FAR
     Route: 061
     Dates: start: 20170217
  4. MENS ROGAINE EXTRA STRENGTH [Suspect]
     Active Substance: MINOXIDIL
     Route: 061
  5. CODIN [Concomitant]
     Indication: BLOOD DISORDER
     Dosage: 9 PILLS
     Route: 065

REACTIONS (5)
  - Underdose [Not Recovered/Not Resolved]
  - Inappropriate schedule of drug administration [Not Recovered/Not Resolved]
  - Skin warm [Not Recovered/Not Resolved]
  - Paraesthesia [Not Recovered/Not Resolved]
  - Feeling cold [Not Recovered/Not Resolved]

NARRATIVE: CASE EVENT DATE: 20170217
